FAERS Safety Report 15164473 (Version 2)
Quarter: 2018Q3

REPORT INFORMATION
  Report Type: Spontaneous
  Country: CZ (occurrence: CZ)
  Receive Date: 20180719
  Receipt Date: 20180726
  Transmission Date: 20181010
  Serious: Yes (Other)
  Sender: FDA-Public Use
  Company Number: CZ-ASTRAZENECA-2018SE89135

PATIENT
  Age: 71 Year
  Sex: Male

DRUGS (11)
  1. QUETIAPINE. [Suspect]
     Active Substance: QUETIAPINE
     Route: 048
  2. RIVASTIGMINE. [Concomitant]
     Active Substance: RIVASTIGMINE
     Route: 065
  3. QUETIAPINE. [Suspect]
     Active Substance: QUETIAPINE
     Dosage: INCREASED TO 100 MG DAILY
     Route: 048
  4. OXAZEPAM. [Suspect]
     Active Substance: OXAZEPAM
     Route: 065
  5. LEVODOPA [Concomitant]
     Active Substance: LEVODOPA
     Dosage: INCREASED DOSE TO 600 MG/DAY
     Route: 048
  6. ROPINIROLE. [Concomitant]
     Active Substance: ROPINIROLE
     Route: 065
  7. QUETIAPINE. [Suspect]
     Active Substance: QUETIAPINE
     Route: 048
  8. LEVODOPA [Concomitant]
     Active Substance: LEVODOPA
     Dosage: 100/25 MG 6X1 TABLET
     Route: 048
  9. ROPINIROLE. [Concomitant]
     Active Substance: ROPINIROLE
     Dosage: GRADUALLY DISCONTINUED BY HALF A DOSE EVETY TWO DAYS
     Route: 065
  10. LEVODOPA [Concomitant]
     Active Substance: LEVODOPA
     Dosage: 100/50/200 MG 6X1 TABL
     Route: 048
  11. MIDAZOLAM [Concomitant]
     Active Substance: MIDAZOLAM HYDROCHLORIDE
     Indication: SEDATIVE THERAPY
     Dosage: 5.0MG ONCE/SINGLE ADMINISTRATION
     Route: 065

REACTIONS (3)
  - Gait inability [Recovering/Resolving]
  - Depression [Recovering/Resolving]
  - Parkinson^s disease [Unknown]
